FAERS Safety Report 7119565-4 (Version None)
Quarter: 2010Q4

REPORT INFORMATION
  Report Type: 
  Country: None (occurrence: None)
  Receive Date: 20101123
  Receipt Date: 20101117
  Transmission Date: 20110411
  Serious: Yes (Disabling, Other)
  Sender: FDA-Public Use
  Company Number: JP-PFIZER INC-2010150115

PATIENT
  Sex: Female

DRUGS (2)
  1. HALCION [Suspect]
     Indication: INSOMNIA
     Route: 048
  2. ADALAT [Concomitant]
     Route: 048

REACTIONS (2)
  - DRUG ADMINISTRATION ERROR [None]
  - GAIT DISTURBANCE [None]
